FAERS Safety Report 12521621 (Version 1)
Quarter: 2016Q3

REPORT INFORMATION
  Report Type: Spontaneous
  Country: US (occurrence: US)
  Receive Date: 20160701
  Receipt Date: 20160701
  Transmission Date: 20161109
  Serious: No
  Sender: FDA-Public Use
  Company Number: US-BIOGEN-2016BI00258472

PATIENT
  Sex: Male

DRUGS (2)
  1. AVONEX [Suspect]
     Active Substance: INTERFERON BETA-1A
     Indication: MULTIPLE SCLEROSIS
     Route: 030
     Dates: start: 201605
  2. AVONEX [Suspect]
     Active Substance: INTERFERON BETA-1A
     Route: 030

REACTIONS (10)
  - Vision blurred [Unknown]
  - Chills [Recovered/Resolved]
  - Influenza like illness [Unknown]
  - Migraine [Recovered/Resolved]
  - Muscle tightness [Recovered/Resolved]
  - Monoplegia [Recovered/Resolved]
  - Hypertension [Recovered/Resolved]
  - Drug dose omission [Recovered/Resolved]
  - Pain [Recovered/Resolved]
  - Headache [Recovered/Resolved]

NARRATIVE: CASE EVENT DATE: 2016
